FAERS Safety Report 22237251 (Version 3)
Quarter: 2023Q2

REPORT INFORMATION
  Report Type: Spontaneous
  Country: PT (occurrence: PT)
  Receive Date: 20230421
  Receipt Date: 20230508
  Transmission Date: 20230722
  Serious: Yes (Death, Other)
  Sender: FDA-Public Use
  Company Number: PT-MYLANLABS-2023M1036864

PATIENT
  Age: 80 Year
  Sex: Male
  Weight: 45 kg

DRUGS (3)
  1. METOCLOPRAMIDE [Suspect]
     Active Substance: METOCLOPRAMIDE
     Indication: Product used for unknown indication
     Dosage: UNK
     Route: 065
  2. ACETAMINOPHEN [Suspect]
     Active Substance: ACETAMINOPHEN
     Indication: Cancer pain
     Dosage: UNK
     Route: 065
  3. TRAMADOL [Suspect]
     Active Substance: TRAMADOL
     Indication: Cancer pain
     Dosage: UNK
     Route: 065

REACTIONS (5)
  - Pleural mesothelioma [Fatal]
  - Decreased appetite [Unknown]
  - Constipation [Unknown]
  - Pain [Unknown]
  - Breath sounds abnormal [Unknown]
